FAERS Safety Report 12659759 (Version 1)
Quarter: 2016Q3

REPORT INFORMATION
  Report Type: Spontaneous
  Country: US (occurrence: US)
  Receive Date: 20160817
  Receipt Date: 20160817
  Transmission Date: 20161109
  Serious: Yes (Hospitalization, Other)
  Sender: FDA-Public Use
  Company Number: US-ASTRAZENECA-2016SE86712

PATIENT
  Age: 698 Month
  Sex: Female
  Weight: 68 kg

DRUGS (2)
  1. PREDNISONE. [Concomitant]
     Active Substance: PREDNISONE
     Indication: SARCOIDOSIS
  2. NEXIUM [Suspect]
     Active Substance: ESOMEPRAZOLE MAGNESIUM
     Indication: GASTROOESOPHAGEAL REFLUX DISEASE
     Dosage: DAILY
     Route: 048
     Dates: start: 2001, end: 201510

REACTIONS (9)
  - Gout [Unknown]
  - Compression fracture [Unknown]
  - Hypertension [Unknown]
  - Nocturia [Unknown]
  - Cerebrovascular accident [Unknown]
  - Urinary incontinence [Unknown]
  - Urinary tract infection [Unknown]
  - Fatigue [Unknown]
  - Chronic kidney disease [Unknown]

NARRATIVE: CASE EVENT DATE: 201008
